FAERS Safety Report 10672285 (Version 1)
Quarter: 2014Q4

REPORT INFORMATION
  Report Type: Spontaneous
  Country: US (occurrence: None)
  Receive Date: 20141222
  Receipt Date: 20141222
  Transmission Date: 20150529
  Serious: Yes (Other)
  Sender: FDA-Public Use
  Company Number: None

PATIENT
  Age: 61 Year
  Sex: Female
  Weight: 71.22 kg

DRUGS (1)
  1. PROPOFOL. [Suspect]
     Active Substance: PROPOFOL
     Indication: ENDOSCOPY GASTROINTESTINAL
     Dates: start: 20141216, end: 20141216

REACTIONS (5)
  - Nausea [None]
  - Abdominal pain upper [None]
  - Chest pain [None]
  - Oropharyngeal pain [None]
  - Dizziness [None]

NARRATIVE: CASE EVENT DATE: 20141216
